FAERS Safety Report 9023808 (Version 2)
Quarter: 2013Q1

REPORT INFORMATION
  Report Type: Spontaneous
  Country: CO (occurrence: CO)
  Receive Date: 20130121
  Receipt Date: 20130204
  Transmission Date: 20140127
  Serious: Yes (Hospitalization, Other)
  Sender: FDA-Public Use
  Company Number: CO-ELI_LILLY_AND_COMPANY-CO201301003339

PATIENT
  Age: 70 Year
  Sex: Female

DRUGS (5)
  1. FORTEO [Suspect]
     Indication: OSTEOPOROSIS
     Dosage: 20 UG, QD
     Route: 058
     Dates: start: 201210
  2. CEPHALEXIN [Concomitant]
     Dosage: UNK
  3. ACETAMINOPHEN [Concomitant]
     Dosage: UNK
  4. CALCIUM W/MAGNESIUM [Concomitant]
     Dosage: UNK
  5. CALCIUM W/VITAMIN D                /00944201/ [Concomitant]
     Dosage: UNK

REACTIONS (3)
  - Rotator cuff syndrome [Recovering/Resolving]
  - Humerus fracture [Recovering/Resolving]
  - Fall [Recovering/Resolving]
